FAERS Safety Report 21300925 (Version 1)
Quarter: 2022Q3

REPORT INFORMATION
  Report Type: Spontaneous
  Country: US (occurrence: US)
  Receive Date: 20220907
  Receipt Date: 20220907
  Transmission Date: 20221027
  Serious: Yes (Hospitalization, Other)
  Sender: FDA-Public Use
  Company Number: US-JNJFOC-20220900768

PATIENT
  Sex: Male

DRUGS (2)
  1. OPSUMIT [Suspect]
     Active Substance: MACITENTAN
     Indication: Product used for unknown indication
     Route: 048
     Dates: start: 20220803
  2. OPSUMIT [Suspect]
     Active Substance: MACITENTAN
     Route: 048
     Dates: start: 20220825

REACTIONS (4)
  - Respiratory disorder [Not Recovered/Not Resolved]
  - Oxygen saturation decreased [Unknown]
  - Hypotension [Unknown]
  - Rash pruritic [Unknown]

NARRATIVE: CASE EVENT DATE: 20220101
